FAERS Safety Report 21762546 (Version 1)
Quarter: 2022Q4

REPORT INFORMATION
  Report Type: Spontaneous
  Country: DE (occurrence: None)
  Receive Date: 20221221
  Receipt Date: 20221221
  Transmission Date: 20230113
  Serious: Yes (Other)
  Sender: FDA-Public Use
  Company Number: DE-ROCHE-3245293

PATIENT
  Sex: Female

DRUGS (1)
  1. OCREVUS [Suspect]
     Active Substance: OCRELIZUMAB
     Indication: Multiple sclerosis
     Route: 065

REACTIONS (6)
  - Multiple sclerosis relapse [Unknown]
  - Sinusitis [Unknown]
  - Muscular weakness [Unknown]
  - Depression [Unknown]
  - Cognitive disorder [Unknown]
  - Body temperature increased [Unknown]
